FAERS Safety Report 9578963 (Version 1)
Quarter: 2013Q4

REPORT INFORMATION
  Report Type: Spontaneous
  Country: US (occurrence: US)
  Receive Date: 20131001
  Receipt Date: 20131001
  Transmission Date: 20140711
  Serious: No
  Sender: FDA-Public Use
  Company Number: US-AMGEN-USASP2013015551

PATIENT
  Sex: Female
  Weight: 50.79 kg

DRUGS (6)
  1. ENBREL [Suspect]
     Indication: RHEUMATOID ARTHRITIS
     Dosage: 50 MG, QWK
     Route: 058
  2. CALCIUM D                          /00944201/ [Concomitant]
     Dosage: UNK
  3. ZANTAC [Concomitant]
     Dosage: 150 MG, UNK
  4. LORAZEPAM [Concomitant]
     Dosage: 1 MG, UNK
  5. LIPITOR [Concomitant]
     Dosage: 40 MG, UNK
  6. CELEBREX [Concomitant]
     Dosage: 200 MG, UNK

REACTIONS (1)
  - Local swelling [Unknown]
